FAERS Safety Report 14806589 (Version 1)
Quarter: 2018Q2

REPORT INFORMATION
  Report Type: Spontaneous
  Country: US (occurrence: US)
  Receive Date: 20180425
  Receipt Date: 20180425
  Transmission Date: 20180711
  Serious: No
  Sender: FDA-Public Use
  Company Number: US-ROCHE-2066233

PATIENT
  Sex: Female

DRUGS (3)
  1. OCREVUS [Suspect]
     Active Substance: OCRELIZUMAB
     Indication: MULTIPLE SCLEROSIS
     Dosage: FIRST HALF OF OCREVUS INFUSION ;ONGOING: NO
     Route: 042
     Dates: start: 20171208, end: 20171208
  2. OCREVUS [Suspect]
     Active Substance: OCRELIZUMAB
     Dosage: SECOND HALF OF OCREVUS INFUSION ;ONGOING: NO
     Route: 042
     Dates: start: 20171222, end: 20171222
  3. OCREVUS [Suspect]
     Active Substance: OCRELIZUMAB
     Dosage: YES
     Route: 042

REACTIONS (2)
  - Headache [Unknown]
  - Fatigue [Not Recovered/Not Resolved]
